FAERS Safety Report 7178924-4 (Version None)
Quarter: 2010Q4

REPORT INFORMATION
  Report Type: 
  Country: None (occurrence: None)
  Receive Date: 20101217
  Receipt Date: 20101217
  Transmission Date: 20110411
  Serious: Yes (Death)
  Sender: FDA-Public Use
  Company Number: None

PATIENT
  Age: 14 Month
  Sex: Female
  Weight: 8.1647 kg

DRUGS (1)
  1. HYLANDS TEETHING TABLETS NOT SURE HYLANDS [Suspect]
     Indication: TEETHING
     Dosage: 2-3 TABLETS 4 TIMES A DAY PO
     Route: 048
     Dates: start: 20100531, end: 20100617

REACTIONS (5)
  - FATIGUE [None]
  - LETHARGY [None]
  - PERSONALITY CHANGE [None]
  - PULSE ABSENT [None]
  - UNRESPONSIVE TO STIMULI [None]
